FAERS Safety Report 8541648-2 (Version None)
Quarter: 2012Q3

REPORT INFORMATION
  Report Type: 
  Country: None (occurrence: None)
  Receive Date: 20120726
  Receipt Date: 20120720
  Transmission Date: 20120928
  Serious: Yes (Life-Threatening, Hospitalization, Disabling, Other)
  Sender: FDA-Public Use
  Company Number: US-GLAXOSMITHKLINE-A0985732A

PATIENT
  Age: 45 Year
  Sex: Female

DRUGS (4)
  1. NO CONCURRENT MEDICATION [Concomitant]
  2. VENTOLIN [Suspect]
     Indication: ASTHMA
     Route: 055
     Dates: start: 20120605, end: 20120715
  3. ADVAIR DISKUS 100/50 [Suspect]
     Indication: ASTHMA
     Dosage: 1PUFF TWICE PER DAY
     Route: 055
     Dates: start: 20120606, end: 20120715
  4. SPIRIVA [Suspect]
     Indication: ASTHMA
     Route: 065

REACTIONS (4)
  - NO THERAPEUTIC RESPONSE [None]
  - DYSPNOEA [None]
  - HYPOXIA [None]
  - WHEEZING [None]
